FAERS Safety Report 4798521-5 (Version None)
Quarter: 2005Q4

REPORT INFORMATION
  Report Type: 
  Country: None (occurrence: None)
  Receive Date: 20051014
  Receipt Date: 20050909
  Transmission Date: 20060501
  Serious: Yes (Hospitalization, Disabling)
  Sender: FDA-Public Use
  Company Number: US-MERCK-0509USA01460

PATIENT
  Age: 46 Year
  Sex: Male
  Weight: 93 kg

DRUGS (8)
  1. VIOXX [Suspect]
     Indication: INTERVERTEBRAL DISC DISORDER
     Route: 048
     Dates: start: 20000901, end: 20010101
  2. GEMFIBROZIL [Concomitant]
     Route: 065
  3. AMIBID LA [Concomitant]
     Route: 065
  4. CLONAZEPAM [Concomitant]
     Route: 065
  5. NAPROXEN [Concomitant]
     Route: 065
  6. TICLOPIDINE HYDROCHLORIDE [Concomitant]
     Route: 065
  7. ZOCOR [Concomitant]
     Route: 065
  8. METOPROLOL [Concomitant]
     Route: 065

REACTIONS (22)
  - ANGINA UNSTABLE [None]
  - ASTHMA [None]
  - CHEST PAIN [None]
  - CORONARY ARTERY DISEASE [None]
  - CORONARY ARTERY RESTENOSIS [None]
  - CORONARY ARTERY STENOSIS [None]
  - CORONARY ARTERY THROMBOSIS [None]
  - COUGH [None]
  - DEPRESSION [None]
  - DRUG EFFECT DECREASED [None]
  - ELECTROCARDIOGRAM ST SEGMENT ELEVATION [None]
  - GASTROOESOPHAGEAL REFLUX DISEASE [None]
  - HYPERLIPIDAEMIA [None]
  - MYOCARDIAL INFARCTION [None]
  - MYOCARDIAL ISCHAEMIA [None]
  - NERVOUSNESS [None]
  - PLATELET COUNT INCREASED [None]
  - RASH [None]
  - RENAL DISORDER [None]
  - SINUS TACHYCARDIA [None]
  - SLEEP APNOEA SYNDROME [None]
  - VENTRICULAR HYPOKINESIA [None]
